FAERS Safety Report 4964684-1 (Version None)
Quarter: 2006Q1

REPORT INFORMATION
  Report Type: 
  Country: None (occurrence: None)
  Receive Date: 20060331
  Receipt Date: 20060315
  Transmission Date: 20060701
  Serious: Yes (Other)
  Sender: FDA-Public Use
  Company Number: US200603004368

PATIENT
  Age: 35 Year
  Sex: Male
  Weight: 90.7 kg

DRUGS (2)
  1. CYMBALTA [Suspect]
     Indication: DEPRESSION
     Dosage: 60 MG, DAILY (1/D)
     Dates: start: 20051201
  2. CELEXA [Concomitant]

REACTIONS (2)
  - ALCOHOL USE [None]
  - BLOOD BILIRUBIN INCREASED [None]
